FAERS Safety Report 8949545 (Version 1)
Quarter: 2012Q4

REPORT INFORMATION
  Report Type: Report from Study
  Country: HU (occurrence: HU)
  Receive Date: 20121206
  Receipt Date: 20121206
  Transmission Date: 20130627
  Serious: Yes (Hospitalization, Disabling)
  Sender: FDA-Public Use
  Company Number: HU-ABBOTT-12P-076-1015486-00

PATIENT
  Age: 65 Year
  Sex: Female
  Weight: 92 kg

DRUGS (9)
  1. HUMIRA [Suspect]
     Indication: ANKYLOSING SPONDYLITIS
     Route: 058
     Dates: start: 20120906, end: 20121126
  2. ENALAPRIL [Concomitant]
     Indication: HYPERTENSION
     Route: 048
  3. NORMODIPINE [Concomitant]
     Indication: HYPERTENSION
     Dosage: In the evening
     Route: 048
  4. METHOTREXATE [Concomitant]
     Indication: ANKYLOSING SPONDYLITIS
     Dosage: 25 mg weekly
     Route: 048
  5. EMILIAN [Concomitant]
     Indication: ANKYLOSING SPONDYLITIS
     Route: 048
  6. ARAVA [Concomitant]
     Indication: ANKYLOSING SPONDYLITIS
     Route: 048
  7. FOLIC ACID [Concomitant]
     Indication: PRODUCT USED FOR UNKNOWN INDICATION
     Route: 048
  8. AFLAMIN [Concomitant]
     Indication: ANKYLOSING SPONDYLITIS
     Route: 048
  9. CONTRAMAL [Concomitant]
     Indication: ANALGESIC THERAPY
     Route: 048

REACTIONS (4)
  - Muscular weakness [Not Recovered/Not Resolved]
  - Pain in extremity [Not Recovered/Not Resolved]
  - Guillain-Barre syndrome [Not Recovered/Not Resolved]
  - Infection [Not Recovered/Not Resolved]
